APPROVED DRUG PRODUCT: RIVIVE
Active Ingredient: NALOXONE HYDROCHLORIDE
Strength: 3MG/SPRAY
Dosage Form/Route: SPRAY, METERED;NASAL
Application: N217722 | Product #001
Applicant: HARM REDUCTION THERAPEUTICS INC
Approved: Jul 28, 2023 | RLD: Yes | RS: Yes | Type: OTC

PATENTS:
Patent 12458591 | Expires: May 11, 2032
Patent 11020343 | Expires: May 11, 2032
Patent 11806428 | Expires: May 11, 2032